FAERS Safety Report 20972169 (Version 2)
Quarter: 2022Q4

REPORT INFORMATION
  Report Type: Spontaneous
  Country: US (occurrence: US)
  Receive Date: 20220616
  Receipt Date: 20221128
  Transmission Date: 20230112
  Serious: No
  Sender: FDA-Public Use
  Company Number: US-SA-SAC20220613001869

PATIENT
  Age: 48 Year
  Sex: Female

DRUGS (2)
  1. CERDELGA [Suspect]
     Active Substance: ELIGLUSTAT
     Indication: Gaucher^s disease
     Dosage: 84 MG, QW
     Route: 048
     Dates: start: 20220131
  2. CERDELGA [Suspect]
     Active Substance: ELIGLUSTAT
     Dosage: UNK, QD
     Route: 048
     Dates: start: 20220202

REACTIONS (2)
  - Weight increased [Unknown]
  - Product dose omission in error [Unknown]

NARRATIVE: CASE EVENT DATE: 20220101
